FAERS Safety Report 6864997-2 (Version None)
Quarter: 2010Q3

REPORT INFORMATION
  Report Type: 
  Country: None (occurrence: None)
  Receive Date: 20100721
  Receipt Date: 20080408
  Transmission Date: 20110219
  Serious: No
  Sender: FDA-Public Use
  Company Number: US-PFIZER INC-2008032301

PATIENT
  Sex: Female
  Weight: 89.09 kg

DRUGS (3)
  1. CHANTIX [Suspect]
     Indication: SMOKING CESSATION THERAPY
     Dates: start: 20080201
  2. TOPAMAX [Concomitant]
     Indication: MIGRAINE
  3. IMITREX [Concomitant]
     Indication: MIGRAINE

REACTIONS (1)
  - RASH [None]
